FAERS Safety Report 12674257 (Version 1)
Quarter: 2016Q3

REPORT INFORMATION
  Report Type: Spontaneous
  Country: GB (occurrence: GB)
  Receive Date: 20160822
  Receipt Date: 20160822
  Transmission Date: 20161109
  Serious: Yes (Hospitalization, Other)
  Sender: FDA-Public Use
  Company Number: GB-ELI_LILLY_AND_COMPANY-GB201608007478

PATIENT
  Age: 19 Year
  Sex: Female

DRUGS (2)
  1. FLUOXETINE [Suspect]
     Active Substance: FLUOXETINE HYDROCHLORIDE
     Indication: DEPRESSION
     Dosage: UNK, UNKNOWN
     Route: 065
  2. CITALOPRAM [Suspect]
     Active Substance: CITALOPRAM HYDROBROMIDE
     Indication: DEPRESSION
     Dosage: UNK, UNKNOWN
     Route: 065

REACTIONS (12)
  - Respiratory acidosis [Recovered/Resolved]
  - Hallucination, visual [Recovered/Resolved]
  - Coma scale abnormal [Recovered/Resolved]
  - Abnormal behaviour [Recovered/Resolved]
  - Urinary incontinence [Unknown]
  - Seizure [Recovered/Resolved]
  - Sinus tachycardia [Recovered/Resolved]
  - Respiratory rate increased [Recovered/Resolved]
  - Somnolence [Unknown]
  - Tonic convulsion [Unknown]
  - Serotonin syndrome [Recovered/Resolved]
  - Agitation [Recovered/Resolved]
